FAERS Safety Report 16199041 (Version 1)
Quarter: 2019Q2

REPORT INFORMATION
  Report Type: Spontaneous
  Country: NL (occurrence: NL)
  Receive Date: 20190415
  Receipt Date: 20190415
  Transmission Date: 20190711
  Serious: Yes (Other)
  Sender: FDA-Public Use
  Company Number: NL-MYLANLABS-2019M1035036

PATIENT
  Age: 44 Year
  Sex: Female
  Weight: 75 kg

DRUGS (9)
  1. TRAMADOL. [Suspect]
     Active Substance: TRAMADOL
     Indication: PRODUCT USED FOR UNKNOWN INDICATION
     Dosage: 50 MG PER DAG
     Dates: start: 20161001
  2. CELL [Concomitant]
     Dosage: UNK
     Dates: start: 20180915
  3. NALTREXON [Interacting]
     Active Substance: NALTREXONE
     Indication: STRESS
     Dosage: 1 CAPSULE PER DAG
     Route: 048
     Dates: start: 20181207, end: 20181209
  4. VITAMIN B12 [Concomitant]
     Active Substance: CYANOCOBALAMIN
     Dosage: UNK
     Dates: start: 20180915
  5. AMITRIPTYLINE [Interacting]
     Active Substance: AMITRIPTYLINE
     Dosage: UNK
  6. GLYCINE. [Concomitant]
     Active Substance: GLYCINE
     Dosage: UNK
     Dates: start: 20181002
  7. VITAMIN D3 [Concomitant]
     Active Substance: CHOLECALCIFEROL
     Dosage: UNK
     Dates: start: 20180915
  8. AMITRIPTYLINE [Interacting]
     Active Substance: AMITRIPTYLINE
     Indication: PRODUCT USED FOR UNKNOWN INDICATION
     Dosage: UNK
     Dates: start: 20161001
  9. UTROGESTAN [Concomitant]
     Active Substance: PROGESTERONE
     Dosage: UNK
     Dates: start: 20181206

REACTIONS (11)
  - Speech disorder [Recovering/Resolving]
  - Somnolence [Recovering/Resolving]
  - Aggression [Recovering/Resolving]
  - Depressed mood [Recovering/Resolving]
  - Medication error [Unknown]
  - Product label issue [Unknown]
  - Irritability [Recovering/Resolving]
  - Gaze palsy [Recovering/Resolving]
  - Drug interaction [Recovering/Resolving]
  - Feeling abnormal [Recovering/Resolving]
  - Fatigue [Recovering/Resolving]

NARRATIVE: CASE EVENT DATE: 20181209
